FAERS Safety Report 4698677-9 (Version None)
Quarter: 2005Q2

REPORT INFORMATION
  Report Type: 
  Country: None (occurrence: None)
  Receive Date: 20050622
  Receipt Date: 20050616
  Transmission Date: 20051028
  Serious: Yes (Other)
  Sender: FDA-Public Use
  Company Number: 200511400BCC

PATIENT
  Sex: Male
  Weight: 67.1324 kg

DRUGS (1)
  1. ASPIRIN [Suspect]
     Dosage: 975 MG, UNK; ORAL
     Route: 048

REACTIONS (1)
  - NO ADVERSE DRUG EFFECT [None]
